FAERS Safety Report 11383037 (Version 1)
Quarter: 2015Q3

REPORT INFORMATION
  Report Type: Spontaneous
  Country: IT (occurrence: IT)
  Receive Date: 20150814
  Receipt Date: 20150814
  Transmission Date: 20151125
  Serious: Yes (Hospitalization)
  Sender: FDA-Public Use
  Company Number: IT-GILEAD-2015-0167174

PATIENT
  Age: 55 Year
  Sex: Male

DRUGS (5)
  1. DACLATASVIR. [Suspect]
     Active Substance: DACLATASVIR
     Indication: CHRONIC HEPATITIS C
     Dosage: 60 MG, QD
     Route: 065
     Dates: start: 20150707, end: 20150718
  2. SOVALDI [Suspect]
     Active Substance: SOFOSBUVIR
     Indication: CHRONIC HEPATITIS C
     Dosage: 400 MG, QD
     Route: 065
     Dates: start: 20150707, end: 20150718
  3. EPIVIR [Suspect]
     Active Substance: LAMIVUDINE
     Indication: ASYMPTOMATIC HIV INFECTION
     Dosage: 300 MG, QD
     Route: 048
     Dates: start: 20150707, end: 20150718
  4. ISENTRESS [Suspect]
     Active Substance: RALTEGRAVIR POTASSIUM
     Indication: ASYMPTOMATIC HIV INFECTION
     Dosage: 400 MG, QID
     Route: 048
     Dates: start: 20150707, end: 20150718
  5. SOVALDI [Suspect]
     Active Substance: SOFOSBUVIR
     Dosage: 400 MG, QD
     Route: 048

REACTIONS (3)
  - Insomnia [Unknown]
  - Neuralgia [Unknown]
  - Agitation [Unknown]

NARRATIVE: CASE EVENT DATE: 20150709
